FAERS Safety Report 19112494 (Version 1)
Quarter: 2021Q2

REPORT INFORMATION
  Report Type: Spontaneous
  Country: NL (occurrence: NL)
  Receive Date: 20210408
  Receipt Date: 20210408
  Transmission Date: 20210717
  Serious: Yes (Other)
  Sender: FDA-Public Use
  Company Number: NL-TEVA-2021-NL-1898436

PATIENT
  Age: 66 Year
  Sex: Female
  Weight: 54 kg

DRUGS (1)
  1. COLCHICINE TABLET 0,5MG / BRAND NAME NOT SPECIFIED [Suspect]
     Active Substance: COLCHICINE
     Indication: CARDIOVASCULAR EVENT PROPHYLAXIS
     Dosage: .5 MILLIGRAM DAILY;
     Dates: start: 20210208, end: 20210214

REACTIONS (3)
  - Influenza like illness [Recovered/Resolved]
  - Cardiac flutter [Recovered/Resolved]
  - Dyspnoea [Recovered/Resolved]

NARRATIVE: CASE EVENT DATE: 20210215
